FAERS Safety Report 9323017 (Version 1)
Quarter: 2013Q2

REPORT INFORMATION
  Report Type: Spontaneous
  Country: BE (occurrence: BE)
  Receive Date: 20130603
  Receipt Date: 20130603
  Transmission Date: 20140414
  Serious: Yes (Hospitalization, Other)
  Sender: FDA-Public Use
  Company Number: BE-MERCK-1305BLR016963

PATIENT
  Age: 5 Month
  Sex: 0

DRUGS (1)
  1. ELOCOM [Suspect]
     Route: 061

REACTIONS (1)
  - Hypersensitivity [Unknown]
